FAERS Safety Report 7633998-9 (Version None)
Quarter: 2011Q3

REPORT INFORMATION
  Report Type: 
  Country: None (occurrence: None)
  Receive Date: 20110725
  Receipt Date: 20110512
  Transmission Date: 20111222
  Serious: Yes (Other)
  Sender: FDA-Public Use
  Company Number: CA-UCBSA-031474

PATIENT
  Sex: Female

DRUGS (1)
  1. LACOSAMIDE [Suspect]
     Indication: PSYCHOTIC DISORDER

REACTIONS (2)
  - ELECTROCARDIOGRAM QT PROLONGED [None]
  - ENCEPHALOPATHY [None]
